FAERS Safety Report 7071352-1 (Version None)
Quarter: 2010Q4

REPORT INFORMATION
  Report Type: 
  Country: None (occurrence: None)
  Receive Date: 20101028
  Receipt Date: 20101028
  Transmission Date: 20110411
  Serious: Yes (Life-Threatening, Hospitalization)
  Sender: FDA-Public Use
  Company Number: None

PATIENT
  Sex: Male
  Weight: 79.3795 kg

DRUGS (1)
  1. AMIODARONE HCL [Suspect]
     Dosage: 200 MG 1 DAILY
     Dates: start: 20100319, end: 20100801

REACTIONS (4)
  - CONFUSIONAL STATE [None]
  - MUSCULAR WEAKNESS [None]
  - NERVE INJURY [None]
  - VISUAL IMPAIRMENT [None]
